FAERS Safety Report 9735476 (Version 1)
Quarter: 2013Q4

REPORT INFORMATION
  Report Type: Spontaneous
  Country: US (occurrence: US)
  Receive Date: 20131206
  Receipt Date: 20131206
  Transmission Date: 20140711
  Serious: No
  Sender: FDA-Public Use
  Company Number: US-GILEAD-2009-0023322

PATIENT
  Sex: Female
  Weight: 75.3 kg

DRUGS (11)
  1. LETAIRIS [Suspect]
     Indication: PULMONARY ARTERIAL HYPERTENSION
     Route: 048
     Dates: start: 20090618
  2. ATENOLOL [Concomitant]
  3. DICYCLOMINE [Concomitant]
  4. ZOCOR [Concomitant]
  5. CELEBREX [Concomitant]
  6. LISINOPRIL-HCTZ [Concomitant]
  7. NIFEDIPINE ER [Concomitant]
  8. KLOR-CON [Concomitant]
  9. HYDROXCHLOROQUINE [Concomitant]
  10. PROZAC [Concomitant]
  11. TRAMADOL [Concomitant]

REACTIONS (4)
  - Hypotension [Unknown]
  - Nightmare [Unknown]
  - Insomnia [Unknown]
  - Fatigue [Unknown]
